FAERS Safety Report 18118184 (Version 1)
Quarter: 2020Q3

REPORT INFORMATION
  Report Type: Spontaneous
  Country: ES (occurrence: ES)
  Receive Date: 20200806
  Receipt Date: 20200806
  Transmission Date: 20201103
  Serious: Yes (Death)
  Sender: FDA-Public Use
  Company Number: ES-B.I. PHARMACEUTICALS,INC./RIDGEFIELD-2020-12-039696

PATIENT
  Age: 40 Year
  Sex: Female
  Weight: 60 kg

DRUGS (5)
  1. GABAPENTINA [Suspect]
     Active Substance: GABAPENTIN
     Indication: INTRACRANIAL PRESSURE INCREASED
     Dosage: 100MG TO 300MG EVERY 24H
     Route: 065
     Dates: start: 20200519, end: 20200602
  2. CEFTRIAXONA [CEFTRIAXONE] [Suspect]
     Active Substance: CEFTRIAXONE
     Indication: PRODUCT USED FOR UNKNOWN INDICATION
     Route: 042
     Dates: start: 20200426, end: 20200429
  3. CATAPRESAN [Suspect]
     Active Substance: CLONIDINE
     Indication: HYPERTENSIVE ENCEPHALOPATHY
     Route: 065
     Dates: start: 20200515, end: 20200602
  4. LINEZOLID. [Suspect]
     Active Substance: LINEZOLID
     Indication: PYREXIA
     Route: 042
     Dates: start: 20200506, end: 20200513
  5. LINEZOLID. [Suspect]
     Active Substance: LINEZOLID
     Indication: URINARY TRACT INFECTION
     Route: 065
     Dates: start: 20200524, end: 20200527

REACTIONS (1)
  - SJS-TEN overlap [Fatal]

NARRATIVE: CASE EVENT DATE: 20200526
